FAERS Safety Report 13694685 (Version 1)
Quarter: 2017Q2

REPORT INFORMATION
  Report Type: Spontaneous
  Country: FR (occurrence: FR)
  Receive Date: 20170627
  Receipt Date: 20170627
  Transmission Date: 20170830
  Serious: Yes (Hospitalization)
  Sender: FDA-Public Use
  Company Number: FR-ASTRAZENECA-2017SE65357

PATIENT
  Age: 741 Month
  Sex: Female

DRUGS (14)
  1. ONDANSETRON [Suspect]
     Active Substance: ONDANSETRON
     Route: 048
     Dates: start: 20170117, end: 20170118
  2. TAVANIC [Suspect]
     Active Substance: LEVOFLOXACIN
     Route: 065
     Dates: start: 20170118, end: 20170124
  3. INNOVAIR [Suspect]
     Active Substance: BECLOMETHASONE DIPROPIONATE\FORMOTEROL
     Indication: BRONCHIAL HYPERREACTIVITY
     Dosage: 100/6 MICROGRAMS, UNKNOWN
     Route: 055
     Dates: end: 201701
  4. MIDAZOLAM [Suspect]
     Active Substance: MIDAZOLAM HYDROCHLORIDE
     Route: 065
     Dates: start: 20170111, end: 20170112
  5. LACTATED RINGERS [Suspect]
     Active Substance: CALCIUM CHLORIDE\POTASSIUM CHLORIDE\SODIUM CHLORIDE\SODIUM LACTATE
     Route: 042
     Dates: start: 20170117, end: 20170118
  6. PARACETAMOL [Suspect]
     Active Substance: ACETAMINOPHEN
     Route: 048
     Dates: start: 20170117, end: 20170124
  7. AUGMENTIN [Suspect]
     Active Substance: AMOXICILLIN\CLAVULANATE POTASSIUM
     Indication: PYREXIA
     Route: 048
     Dates: start: 20170117, end: 20170125
  8. EUPANTOL [Suspect]
     Active Substance: PANTOPRAZOLE SODIUM
     Route: 048
     Dates: start: 20170111, end: 20170124
  9. ERYTHROMYCIN. [Suspect]
     Active Substance: ERYTHROMYCIN
     Indication: PNEUMONIA
     Route: 048
     Dates: start: 201701, end: 201701
  10. SPASFON (PHLOROGLUCINOL, TRIMETHYLPHLOROGLUCINOL) [Suspect]
     Active Substance: PHLOROGLUCINOL\1,3,5-TRIMETHOXYBENZENE
     Route: 048
     Dates: start: 20170117, end: 20170121
  11. MOPRAL [Suspect]
     Active Substance: OMEPRAZOLE SODIUM
     Route: 048
     Dates: end: 201701
  12. ACUPAN [Suspect]
     Active Substance: NEFOPAM HYDROCHLORIDE
     Route: 065
     Dates: start: 20170112, end: 20170112
  13. KETAMINE [Suspect]
     Active Substance: KETAMINE
     Route: 065
     Dates: start: 20170111, end: 20170112
  14. MORPHINE [Suspect]
     Active Substance: MORPHINE
     Route: 065
     Dates: start: 20170111, end: 20170112

REACTIONS (2)
  - Hepatocellular injury [Recovered/Resolved]
  - Cholestasis [Recovered/Resolved]

NARRATIVE: CASE EVENT DATE: 201701
